FAERS Safety Report 7212076-7 (Version None)
Quarter: 2010Q4

REPORT INFORMATION
  Report Type: 
  Country: None (occurrence: None)
  Receive Date: 20101228
  Receipt Date: 20101214
  Transmission Date: 20110411
  Serious: Yes (Other)
  Sender: FDA-Public Use
  Company Number: 023891

PATIENT

DRUGS (5)
  1. KEPPRA [Suspect]
     Indication: EPILEPSY
     Dosage: 500 MG BID TRANSPLACENTAL, 1500 MG TRANSPLACENTAL;  2000 MG TRANSPLACENTAL
     Route: 064
     Dates: start: 20100101, end: 20100101
  2. KEPPRA [Suspect]
     Indication: EPILEPSY
     Dosage: 500 MG BID TRANSPLACENTAL, 1500 MG TRANSPLACENTAL;  2000 MG TRANSPLACENTAL
     Route: 064
     Dates: end: 20100101
  3. KEPPRA [Suspect]
     Indication: EPILEPSY
     Dosage: 500 MG BID TRANSPLACENTAL, 1500 MG TRANSPLACENTAL;  2000 MG TRANSPLACENTAL
     Route: 064
     Dates: start: 20100101
  4. PRENATAL VITAMINS [Concomitant]
  5. FOLIC ACID [Concomitant]

REACTIONS (2)
  - KIDNEY ENLARGEMENT [None]
  - MATERNAL DRUGS AFFECTING FOETUS [None]
